APPROVED DRUG PRODUCT: DURAGESIC-25
Active Ingredient: FENTANYL
Strength: 25MCG/HR **Federal Register determination that product was not discontinued or withdrawn for safety or effectiveness reasons**
Dosage Form/Route: FILM, EXTENDED RELEASE;TRANSDERMAL
Application: N019813 | Product #004
Applicant: JANSSEN PHARMACEUTICALS INC
Approved: Aug 7, 1990 | RLD: Yes | RS: No | Type: DISCN